FAERS Safety Report 17489422 (Version 13)
Quarter: 2022Q2

REPORT INFORMATION
  Report Type: Report from Study
  Country: GB (occurrence: GB)
  Receive Date: 20200303
  Receipt Date: 20220623
  Transmission Date: 20220721
  Serious: Yes (Hospitalization)
  Sender: FDA-Public Use
  Company Number: GB-ROCHE-1882052

PATIENT
  Age: 70 Year
  Sex: Female

DRUGS (28)
  1. TRASTUZUMAB [Suspect]
     Active Substance: TRASTUZUMAB
     Indication: HER2 positive breast cancer
     Dosage: 546 MILLIGRAM, QD, (NUMBER OF CYCLES PER REGIMEN: 6)
     Route: 042
     Dates: start: 20160628, end: 20160628
  2. TRASTUZUMAB [Suspect]
     Active Substance: TRASTUZUMAB
     Indication: Breast cancer metastatic
     Dosage: 399 MILLIGRAM, Q3W, (NUMBER OF CYCLES PER REGIMEN: 6)
     Route: 042
     Dates: start: 20160803, end: 20160824
  3. TRASTUZUMAB [Suspect]
     Active Substance: TRASTUZUMAB
     Indication: Diarrhoea
     Dosage: 399 MILLIGRAM, Q3W (NUMBER OF CYCLES PER REGIMEN: 6)
     Route: 042
     Dates: start: 20160824
  4. TRASTUZUMAB [Suspect]
     Active Substance: TRASTUZUMAB
     Dosage: 357 MILLIGRAM, Q3W, (NUMBER OF CYCLES PER REGIMEN: 6)
     Route: 042
     Dates: start: 20160921
  5. DOCETAXEL [Suspect]
     Active Substance: DOCETAXEL
     Indication: HER2 positive breast cancer
     Dosage: 132 MILLIGRAM, QW
     Route: 042
     Dates: start: 20160728, end: 20160803
  6. DOCETAXEL [Suspect]
     Active Substance: DOCETAXEL
     Indication: Breast cancer metastatic
     Dosage: 132 MILLIGRAM, QW
     Route: 042
     Dates: start: 20160803
  7. PERTUZUMAB [Suspect]
     Active Substance: PERTUZUMAB
     Indication: HER2 positive breast cancer
     Dosage: 840 MILLIGRAM, QD, (NUMBER OF CYCLES PER REGIMEN: 6)
     Route: 042
     Dates: start: 20160728, end: 20160728
  8. PERTUZUMAB [Suspect]
     Active Substance: PERTUZUMAB
     Indication: Breast cancer metastatic
     Dosage: 420 MILLIGRAM, Q3W, (NUMBER OF CYCLES PER REGIMEN: 6)
     Route: 042
     Dates: start: 20160803
  9. FASLODEX [Suspect]
     Active Substance: FULVESTRANT
     Indication: HER2 positive breast cancer
     Dosage: 500 MILLIGRAM, BIWEEKLY (500 MG, BIW)(START: 30-JAN-2017 )
     Route: 030
     Dates: end: 20170228
  10. PIPERACILLIN SODIUM\TAZOBACTAM SODIUM [Concomitant]
     Active Substance: PIPERACILLIN SODIUM\TAZOBACTAM SODIUM
     Indication: Product used for unknown indication
     Dosage: 4.5 MILLIGRAM, TID
     Route: 042
     Dates: start: 20160811, end: 20160813
  11. PIPERACILLIN SODIUM\TAZOBACTAM SODIUM [Concomitant]
     Active Substance: PIPERACILLIN SODIUM\TAZOBACTAM SODIUM
     Dosage: 5 MILLIGRAM, TID
     Route: 042
     Dates: start: 20160811, end: 20160813
  12. PIPERACILLIN SODIUM\TAZOBACTAM SODIUM [Concomitant]
     Active Substance: PIPERACILLIN SODIUM\TAZOBACTAM SODIUM
     Dosage: 5 MILLIGRAM
     Route: 042
     Dates: start: 20160811, end: 20160813
  13. PIPERACILLIN SODIUM\TAZOBACTAM SODIUM [Concomitant]
     Active Substance: PIPERACILLIN SODIUM\TAZOBACTAM SODIUM
     Dosage: 13.5 MILLIGRAM, QD
     Route: 042
     Dates: start: 20160811
  14. PIPERACILLIN SODIUM\TAZOBACTAM SODIUM [Concomitant]
     Active Substance: PIPERACILLIN SODIUM\TAZOBACTAM SODIUM
     Dosage: 4.5 MILLIGRAM
     Route: 042
     Dates: start: 20160811, end: 20160813
  15. PIPERACILLIN SODIUM\TAZOBACTAM SODIUM [Concomitant]
     Active Substance: PIPERACILLIN SODIUM\TAZOBACTAM SODIUM
     Dosage: 13.5 MILLIGRAM, QD
     Route: 042
     Dates: start: 20160813
  16. ALBUTEROL [Concomitant]
     Active Substance: ALBUTEROL
     Indication: Asthma
     Dosage: 2 DOSAGE FORM, QD (2 DF, QD (2 PUFFS QDS WHEN NECESSARY))
     Route: 048
  17. ALBUTEROL [Concomitant]
     Active Substance: ALBUTEROL
     Dosage: 1 DOSAGE FORM (1 DF (1 PUFF))
     Route: 048
  18. RANITIDINE [Concomitant]
     Active Substance: RANITIDINE
     Indication: Product used for unknown indication
     Dosage: 300 MILLIGRAM, QD (150 MG, BID)
     Route: 048
     Dates: start: 20160811
  19. RANITIDINE [Concomitant]
     Active Substance: RANITIDINE
     Dosage: 300 MILLIGRAM, QD
     Route: 048
     Dates: start: 20160811
  20. AMOXICILLIN\CLAVULANATE POTASSIUM [Concomitant]
     Active Substance: AMOXICILLIN\CLAVULANATE POTASSIUM
     Dosage: 625 MILLIGRAM (OTHER: OVER THE COURSE OF 4 DAYS)
     Route: 048
     Dates: start: 20160815, end: 20160819
  21. CALCIUM\CHOLECALCIFEROL [Concomitant]
     Active Substance: CALCIUM\CHOLECALCIFEROL
     Indication: Calcium deficiency
     Dosage: 1 DOSAGE FORM, PM (1 TABLET EVERY NIGHT (ON)
     Route: 048
  22. CALCIUM\CHOLECALCIFEROL [Concomitant]
     Active Substance: CALCIUM\CHOLECALCIFEROL
     Indication: Vitamin D deficiency
     Dosage: UNK
     Route: 065
  23. CYCLIZINE [Concomitant]
     Active Substance: CYCLIZINE
     Indication: Nausea
     Dosage: 50 MILLIGRAM
     Route: 048
  24. ACETAMINOPHEN [Concomitant]
     Active Substance: ACETAMINOPHEN
     Indication: Abdominal pain lower
     Dosage: 1000 MILLIGRAM, QD (500 MG, BID)
     Route: 048
  25. ACETAMINOPHEN [Concomitant]
     Active Substance: ACETAMINOPHEN
     Dosage: 1000 MILLIGRAM, QD
     Route: 048
  26. DIHYDROCODEINE [Concomitant]
     Active Substance: DIHYDROCODEINE
     Indication: Pain
     Dosage: 30 MILLIGRAM (START DATE:16-NOV-2016 )
     Route: 048
  27. POLYETHYLENE GLYCOL 3350\POTASSIUM CHLORIDE\SODIUM BICARBONATE\SODIUM [Concomitant]
     Active Substance: POLYETHYLENE GLYCOL 3350\POTASSIUM CHLORIDE\SODIUM BICARBONATE\SODIUM CHLORIDE
     Indication: Diarrhoea
     Dosage: 2 DOSAGE FORM, QD (2 OT, QD (1 OTHER SACHET))(START:21-NOV-2016)
     Route: 048
     Dates: end: 20161122
  28. POLYETHYLENE GLYCOL 3350\POTASSIUM CHLORIDE\SODIUM BICARBONATE\SODIUM [Concomitant]
     Active Substance: POLYETHYLENE GLYCOL 3350\POTASSIUM CHLORIDE\SODIUM BICARBONATE\SODIUM CHLORIDE
     Dosage: UNK UNK , 0.5 DAY (1 OTHER SACHET)
     Route: 048
     Dates: start: 20161121, end: 20161122

REACTIONS (6)
  - Biliary sepsis [Recovered/Resolved with Sequelae]
  - Overflow diarrhoea [Recovered/Resolved]
  - Abdominal pain [Unknown]
  - Constipation [Recovered/Resolved]
  - Off label use [Unknown]
  - Abdominal pain lower [Unknown]

NARRATIVE: CASE EVENT DATE: 20160907
